FAERS Safety Report 7408274-X (Version None)
Quarter: 2011Q2

REPORT INFORMATION
  Report Type: 
  Country: None (occurrence: None)
  Receive Date: 20110412
  Receipt Date: 20110307
  Transmission Date: 20111010
  Serious: Yes (Other)
  Sender: FDA-Public Use
  Company Number: US-BAYER-201034608NA

PATIENT
  Age: 35 Year
  Sex: Female

DRUGS (2)
  1. ALLEGRA-D 12 HOUR [Concomitant]
     Indication: PRODUCT USED FOR UNKNOWN INDICATION
  2. YAZ [Suspect]
     Indication: PRODUCT USED FOR UNKNOWN INDICATION
     Route: 048
     Dates: start: 20070601, end: 20081201

REACTIONS (3)
  - MUSCLE SPASMS [None]
  - GALLBLADDER DISORDER [None]
  - CHOLELITHIASIS [None]
